FAERS Safety Report 7205532-9 (Version None)
Quarter: 2010Q4

REPORT INFORMATION
  Report Type: 
  Country: None (occurrence: None)
  Receive Date: 20101231
  Receipt Date: 20101222
  Transmission Date: 20110411
  Serious: Yes (Death, Hospitalization)
  Sender: FDA-Public Use
  Company Number: US-SANOFI-AVENTIS-2010SA078131

PATIENT
  Age: 81 Year
  Sex: Male

DRUGS (1)
  1. PLAVIX [Suspect]
     Route: 048
     Dates: end: 20101001

REACTIONS (3)
  - MALAISE [None]
  - RENAL FAILURE [None]
  - RENAL ISCHAEMIA [None]
